FAERS Safety Report 7273857-7 (Version None)
Quarter: 2011Q1

REPORT INFORMATION
  Report Type: 
  Country: None (occurrence: None)
  Receive Date: 20110203
  Receipt Date: 20101116
  Transmission Date: 20110831
  Serious: Yes (Other)
  Sender: FDA-Public Use
  Company Number: US-BAYER-2010-004995

PATIENT
  Sex: Female

DRUGS (4)
  1. FLUOCINOLONE ACETONIDE [Concomitant]
     Indication: URTICARIA
  2. AVELOX [Suspect]
     Indication: SINUSITIS
     Dosage: 400 MG, UNK
     Route: 048
     Dates: start: 20101116, end: 20101116
  3. ADVAIR [Concomitant]
     Dosage: UNK
     Dates: start: 20101001
  4. UNCODEABLE ^UNCLASSIFIABLE^ [Concomitant]
     Dosage: UNK
     Dates: end: 20101001

REACTIONS (4)
  - URTICARIA [None]
  - HYPERSENSITIVITY [None]
  - RASH [None]
  - PRURITUS [None]
